FAERS Safety Report 4582114-9 (Version None)
Quarter: 2005Q1

REPORT INFORMATION
  Report Type: 
  Country: None (occurrence: None)
  Receive Date: 20050119
  Receipt Date: 20040102
  Transmission Date: 20050727
  Serious: Yes (Other)
  Sender: FDA-Public Use
  Company Number: A03200400016

PATIENT
  Age: 89 Year
  Sex: Male
  Weight: 72.5755 kg

DRUGS (4)
  1. PLAVIX [Suspect]
     Indication: TRANSIENT ISCHAEMIC ATTACK
     Dosage: 75 MG QD  - ORAL
     Route: 048
     Dates: start: 20030301
  2. PRAVASTATIN SODIUM [Concomitant]
  3. VITAMIN E [Concomitant]
  4. MULTI-VITAMIN [Concomitant]

REACTIONS (1)
  - ISCHAEMIC STROKE [None]
